FAERS Safety Report 6803792-7 (Version None)
Quarter: 2010Q2

REPORT INFORMATION
  Report Type: 
  Country: None (occurrence: None)
  Receive Date: 20100628
  Receipt Date: 20100628
  Transmission Date: 20101027
  Serious: No
  Sender: FDA-Public Use
  Company Number: None

PATIENT
  Age: 64 Year
  Sex: Female
  Weight: 66.2252 kg

DRUGS (8)
  1. METOCLOPROMIDE 10MG [Suspect]
     Indication: ABDOMINAL PAIN UPPER
     Dosage: 10 QID PO
     Route: 048
     Dates: start: 20081013, end: 20100622
  2. METOCLOPROMIDE 10MG [Suspect]
     Indication: NAUSEA
     Dosage: 10 QID PO
     Route: 048
     Dates: start: 20081013, end: 20100622
  3. SYMBYAX [Suspect]
     Indication: DEPRESSION
     Dosage: 12/25 QD PO
     Route: 048
     Dates: start: 20090924, end: 20100528
  4. GABAPENTIN [Concomitant]
  5. TYLENOL W/ CODEINE NO. 3 [Concomitant]
  6. XANAX [Concomitant]
  7. OMEPRAZOLE [Concomitant]
  8. LISINOPRIL [Concomitant]

REACTIONS (6)
  - DRUG LEVEL INCREASED [None]
  - FLAT AFFECT [None]
  - PARKINSONISM [None]
  - SEDATION [None]
  - SOMNOLENCE [None]
  - TREMOR [None]
